FAERS Safety Report 23369142 (Version 3)
Quarter: 2024Q1

REPORT INFORMATION
  Report Type: Report from Study
  Country: US (occurrence: US)
  Receive Date: 20240105
  Receipt Date: 20240206
  Transmission Date: 20240410
  Serious: Yes (Hospitalization, Other)
  Sender: FDA-Public Use
  Company Number: US-GILEAD-2024-0657288

PATIENT
  Age: 17 Year
  Sex: Male

DRUGS (4)
  1. AMBRISENTAN [Suspect]
     Active Substance: AMBRISENTAN
     Indication: Pulmonary arterial hypertension
     Dosage: 10 MG, QD
     Route: 065
     Dates: start: 202312
  2. DUPIXENT [Suspect]
     Active Substance: DUPILUMAB
     Indication: Asthma
     Dosage: 300 MG (WEEK)
     Route: 065
     Dates: start: 202112
  3. UPTRAVI [Suspect]
     Active Substance: SELEXIPAG
     Indication: Pulmonary arterial hypertension
     Dosage: 1200 MG, QD
     Route: 065
     Dates: start: 202312
  4. ADCIRCA [Concomitant]
     Active Substance: TADALAFIL
     Route: 065
     Dates: start: 202312

REACTIONS (6)
  - Cardiac disorder [Unknown]
  - Headache [Recovered/Resolved]
  - Epistaxis [Recovered/Resolved]
  - Off label use [Not Recovered/Not Resolved]
  - Heart rate irregular [Not Recovered/Not Resolved]
  - Dizziness [Not Recovered/Not Resolved]

NARRATIVE: CASE EVENT DATE: 20231201
